FAERS Safety Report 9292926 (Version 1)
Quarter: 2013Q2

REPORT INFORMATION
  Report Type: Spontaneous
  Country: US (occurrence: None)
  Receive Date: 20130513
  Receipt Date: 20130513
  Transmission Date: 20140414
  Serious: Yes (Other)
  Sender: FDA-Public Use
  Company Number: AUR-APL-2013-03962

PATIENT
  Age: 55 Year
  Sex: Female
  Weight: 39 kg

DRUGS (4)
  1. VALACYCLOVIR [Suspect]
     Indication: HERPES ZOSTER
  2. CELEBREX (CELECOXIB) [Suspect]
     Indication: PRODUCT USED FOR UNKNOWN INDICATION
  3. VALTREX [Suspect]
     Indication: HERPES ZOSTER
     Dates: start: 1994
  4. PREMPRO [Concomitant]

REACTIONS (16)
  - Cerebrovascular accident [None]
  - Feeling abnormal [None]
  - Economic problem [None]
  - Burning sensation [None]
  - Unevaluable event [None]
  - Insomnia [None]
  - Thyroid disorder [None]
  - Drug ineffective [None]
  - Migraine [None]
  - Weight increased [None]
  - Fluid retention [None]
  - Tendon disorder [None]
  - Oedema [None]
  - Blood pressure increased [None]
  - General physical health deterioration [None]
  - Back disorder [None]
